FAERS Safety Report 15401002 (Version 1)
Quarter: 2018Q3

REPORT INFORMATION
  Report Type: Spontaneous
  Country: US (occurrence: US)
  Receive Date: 20180914
  Receipt Date: 20180914
  Transmission Date: 20181010
  Serious: Yes (Other)
  Sender: FDA-Public Use
  Company Number: None

PATIENT
  Age: 60 Year
  Sex: Female

DRUGS (9)
  1. ROSUVASTATIN TAB 5 MG [Concomitant]
  2. HUMIRA [Suspect]
     Active Substance: ADALIMUMAB
     Indication: RHEUMATOID ARTHRITIS
     Route: 058
     Dates: start: 20180817, end: 20180901
  3. NITROFURANTONIN MAC 100 MG [Concomitant]
     Dates: start: 20180822, end: 20180829
  4. PANTOPRAZOLE SODIUM. [Concomitant]
     Active Substance: PANTOPRAZOLE SODIUM
  5. ELIQUIS TAB 5 MG [Concomitant]
  6. DICLOFENAC GEL 1% [Concomitant]
     Active Substance: DICLOFENAC
     Dates: start: 20180830
  7. DEXAMETHASONE 4 MG [Concomitant]
     Dates: start: 20180827, end: 20180830
  8. METHYLPREDNISONE 4 MG [Concomitant]
  9. EZETIMIBE TAB 10 MG [Concomitant]

REACTIONS (1)
  - Pulmonary embolism [None]

NARRATIVE: CASE EVENT DATE: 20180901
